FAERS Safety Report 10538914 (Version 2)
Quarter: 2014Q4

REPORT INFORMATION
  Report Type: Spontaneous
  Country: JP (occurrence: JP)
  Receive Date: 20141023
  Receipt Date: 20141023
  Transmission Date: 20150529
  Serious: Yes (Other)
  Sender: FDA-Public Use
  Company Number: JP-GLAXOSMITHKLINE-JP2014JPN006786

PATIENT
  Sex: Female

DRUGS (1)
  1. FLUNASE [Suspect]
     Active Substance: FLUTICASONE PROPIONATE
     Indication: RHINITIS ALLERGIC
     Dosage: 50 ?G, BID
     Route: 045

REACTIONS (3)
  - Infection [Not Recovered/Not Resolved]
  - Dacryocystitis [Unknown]
  - Inflammation of lacrimal passage [Unknown]

NARRATIVE: CASE EVENT DATE: 20141014
